FAERS Safety Report 6357492-0 (Version None)
Quarter: 2009Q3

REPORT INFORMATION
  Report Type: 
  Country: None (occurrence: None)
  Receive Date: 20090916
  Receipt Date: 20090902
  Transmission Date: 20100115
  Serious: Yes (Other)
  Sender: FDA-Public Use
  Company Number: FR-ROCHE-655565

PATIENT
  Age: 62 Year
  Sex: Male

DRUGS (6)
  1. CEFTRIAXONE SODIUM [Suspect]
     Indication: WHIPPLE'S DISEASE
     Route: 042
     Dates: start: 20030101
  2. CEFTRIAXONE SODIUM [Suspect]
     Route: 042
     Dates: start: 20070101
  3. SULFAMETHOXAZOLE AND TRIMETHOPRIM [Suspect]
     Indication: WHIPPLE'S DISEASE
     Route: 048
     Dates: start: 19850101
  4. SULFAMETHOXAZOLE AND TRIMETHOPRIM [Suspect]
     Route: 048
     Dates: start: 20040101, end: 20070101
  5. SULFAMETHOXAZOLE AND TRIMETHOPRIM [Suspect]
     Dosage: DOASAGE REDUCED TO HALF
     Route: 048
     Dates: start: 20070101
  6. SULFAMETHOXAZOLE AND TRIMETHOPRIM [Suspect]
     Dosage: 1600 MG SULFAMETHOXAZOLE PER DAY AND 320 MG TRIMETHOPRIM PER DAY
     Route: 048

REACTIONS (2)
  - LIVER DISORDER [None]
  - WHIPPLE'S DISEASE [None]
